FAERS Safety Report 10608811 (Version 3)
Quarter: 2015Q1

REPORT INFORMATION
  Report Type: Spontaneous
  Country: US (occurrence: US)
  Receive Date: 20141125
  Receipt Date: 20150119
  Transmission Date: 20150720
  Serious: No
  Sender: FDA-Public Use
  Company Number: US-GLAXOSMITHKLINE-US2014GSK021176

PATIENT
  Age: 29 Year
  Sex: Female

DRUGS (5)
  1. LAMICTAL [Suspect]
     Active Substance: LAMOTRIGINE
     Indication: EPILEPSY
     Dosage: 400 MG IN THE AM, 200 MG IN THE PM
     Route: 048
     Dates: start: 2010
  2. LAMICTAL XR [Suspect]
     Active Substance: LAMOTRIGINE
     Indication: EPILEPSY
     Dosage: 50 DF, U
  3. VITAMINS [Concomitant]
     Active Substance: VITAMINS
  4. LAMICTAL XR [Suspect]
     Active Substance: LAMOTRIGINE
     Dosage: 200 DF, U
  5. LAMICTAL XR [Suspect]
     Active Substance: LAMOTRIGINE
     Dosage: 300 DF, U

REACTIONS (1)
  - Exposure during pregnancy [Unknown]

NARRATIVE: CASE EVENT DATE: 201308
